FAERS Safety Report 8530735-0 (Version None)
Quarter: 2012Q3

REPORT INFORMATION
  Report Type: 
  Country: None (occurrence: None)
  Receive Date: 20120723
  Receipt Date: 20120717
  Transmission Date: 20120928
  Serious: Yes (Life-Threatening)
  Sender: FDA-Public Use
  Company Number: PHHY2012MX062808

PATIENT
  Sex: Female

DRUGS (1)
  1. ZOLEDRONOC ACID [Suspect]
     Indication: OSTEOPOROSIS
     Dosage: 5 MG/100ML, ONCE A YEAR
     Route: 042

REACTIONS (3)
  - PAIN IN EXTREMITY [None]
  - FEELING ABNORMAL [None]
  - PYREXIA [None]
